FAERS Safety Report 13668418 (Version 1)
Quarter: 2017Q2

REPORT INFORMATION
  Report Type: Spontaneous
  Country: US (occurrence: US)
  Receive Date: 20170619
  Receipt Date: 20170619
  Transmission Date: 20170830
  Serious: Yes (Hospitalization)
  Sender: FDA-Public Use
  Company Number: None

PATIENT
  Age: 82 Year
  Sex: Male
  Weight: 96.43 kg

DRUGS (11)
  1. METOPROLOL TARTRATE. [Concomitant]
     Active Substance: METOPROLOL TARTRATE
  2. WARFARIN [Concomitant]
     Active Substance: WARFARIN
  3. ACYCLOVIR. [Concomitant]
     Active Substance: ACYCLOVIR
  4. DOCUSATE SODIUM. [Concomitant]
     Active Substance: DOCUSATE SODIUM
  5. METAMUCIL INSTANT MIX [Concomitant]
  6. LOSARTAN POTASSIUM. [Concomitant]
     Active Substance: LOSARTAN POTASSIUM
  7. TYLENOL [Concomitant]
     Active Substance: ACETAMINOPHEN
  8. CIPROFLOXACIN. [Concomitant]
     Active Substance: CIPROFLOXACIN
  9. AMLODIPINE [Concomitant]
     Active Substance: AMLODIPINE BESYLATE
  10. ALLOPURINOL. [Concomitant]
     Active Substance: ALLOPURINOL
  11. DECITABINE. [Suspect]
     Active Substance: DECITABINE
     Indication: ACUTE MYELOID LEUKAEMIA
     Dosage: 43 MG, 0-10 Q MONTH IV
     Route: 042
     Dates: start: 20170313, end: 20170611

REACTIONS (9)
  - Respiratory rate decreased [None]
  - Septic shock [None]
  - Asthenia [None]
  - Fall [None]
  - Hypotension [None]
  - Atrioventricular block first degree [None]
  - Chills [None]
  - Pyrexia [None]
  - Dyspnoea [None]

NARRATIVE: CASE EVENT DATE: 20170618
